FAERS Safety Report 10913070 (Version 3)
Quarter: 2015Q2

REPORT INFORMATION
  Report Type: Spontaneous
  Country: RS (occurrence: RS)
  Receive Date: 20150313
  Receipt Date: 20150522
  Transmission Date: 20150821
  Serious: Yes (Death, Other)
  Sender: FDA-Public Use
  Company Number: RS-TEVA-509212USA

PATIENT
  Age: 50 Year
  Sex: Female

DRUGS (1)
  1. BENDAMUSTINE HYDROCHLORIDE [Suspect]
     Active Substance: BENDAMUSTINE HYDROCHLORIDE
     Indication: CHRONIC LYMPHOCYTIC LEUKAEMIA REFRACTORY
     Dosage: 160 MG, X 2
     Route: 042
     Dates: start: 20140605, end: 20140606

REACTIONS (3)
  - Neutropenia [Not Recovered/Not Resolved]
  - Chronic lymphocytic leukaemia [Fatal]
  - Thrombocytopenia [Not Recovered/Not Resolved]

NARRATIVE: CASE EVENT DATE: 20140708
